FAERS Safety Report 9169196 (Version 1)
Quarter: 2013Q1

REPORT INFORMATION
  Report Type: Spontaneous
  Country: FR (occurrence: FR)
  Receive Date: 20130318
  Receipt Date: 20130318
  Transmission Date: 20140127
  Serious: Yes (Hospitalization)
  Sender: FDA-Public Use
  Company Number: FR-BRISTOL-MYERS SQUIBB COMPANY-17457631

PATIENT
  Age: 84 Year
  Sex: Male

DRUGS (10)
  1. COUMADIN TABS 2 MG [Suspect]
     Indication: ATRIAL FIBRILLATION
     Route: 048
     Dates: start: 20120930, end: 20130115
  2. DEPAKOTE [Suspect]
     Dosage: 2 TABS PER DAY FOR 3 DAYS FROM 11JAN2013 TO 13JAN2013 THEN 1 TABLET PER DAY UNTIL 15JAN2013
     Dates: start: 20120930, end: 20130115
  3. SPIRIVA [Suspect]
     Route: 055
     Dates: end: 20130131
  4. AMOXICILLIN + CLAVULANIC ACID [Suspect]
     Dosage: AMOXICILLIN 1G / CLAVULANIC ACID 200 MG 3/D
     Route: 042
     Dates: start: 20121230, end: 20130107
  5. CALCIDIA [Suspect]
     Route: 048
     Dates: start: 20121230, end: 20130109
  6. TERBUTALINE [Concomitant]
     Dosage: TERBUTALINE ARROW TILL 07JAN13?RECHALLENGED FROM 31-JAN-2013,
     Route: 055
  7. IPRATROPIUM [Concomitant]
     Dosage: IPRATROPIUM ARROW ADULTS 0.5 MG/0.2ML TILL 06-JAN13?RECHALLENGED FROM 31-JAN-2013
     Route: 055
  8. FUROSEMIDE [Concomitant]
     Dates: start: 20121231, end: 20130105
  9. TIAPRIDAL [Concomitant]
     Dosage: TILL 09-JAN AND FRM 25JN2013 PATIENT REQUEST
     Route: 048
     Dates: start: 20130102
  10. BISOPROLOL HEMIFUMARATE [Concomitant]
     Dosage: 1 DF = 0.5 UNITS NOS
     Dates: start: 20120131

REACTIONS (3)
  - Thrombocytopenia [Recovered/Resolved]
  - Lung disorder [Recovered/Resolved]
  - Haematoma [Recovered/Resolved]
